FAERS Safety Report 6460519-9 (Version None)
Quarter: 2009Q4

REPORT INFORMATION
  Report Type: 
  Country: None (occurrence: None)
  Receive Date: 20091125
  Receipt Date: 20091125
  Transmission Date: 20100525
  Serious: Yes (Other)
  Sender: FDA-Public Use
  Company Number: None

PATIENT
  Age: 60 Year
  Sex: Female
  Weight: 86.1834 kg

DRUGS (1)
  1. VYTORIN [Suspect]
     Indication: BLOOD CHOLESTEROL INCREASED
     Dosage: DAILY
     Dates: start: 20090101, end: 20091122

REACTIONS (4)
  - AMNESIA [None]
  - FATIGUE [None]
  - QUALITY OF LIFE DECREASED [None]
  - SLEEP APNOEA SYNDROME [None]
